FAERS Safety Report 21352368 (Version 4)
Quarter: 2022Q4

REPORT INFORMATION
  Report Type: Spontaneous
  Country: DE (occurrence: DE)
  Receive Date: 20220920
  Receipt Date: 20221031
  Transmission Date: 20230112
  Serious: Yes (Hospitalization, Other)
  Sender: FDA-Public Use
  Company Number: DE-ADRED-05723-01

PATIENT
  Age: 76 Year
  Sex: Male
  Weight: 80.5 kg

DRUGS (27)
  1. CANDESARTAN [Suspect]
     Active Substance: CANDESARTAN
     Indication: Product used for unknown indication
     Dosage: 16 MILLIGRAM, TWO TIMES A DAY
     Route: 048
  2. IBUPROFEN [Suspect]
     Active Substance: IBUPROFEN
     Indication: Product used for unknown indication
     Dosage: 600 MILLIGRAM
     Route: 048
  3. IBUPROFEN [Suspect]
     Active Substance: IBUPROFEN
     Dosage: 600 MILLIGRAM, AS NECESSARY,(BEDARF, REQUIREMENT PRN)
     Route: 048
  4. METFORMIN HYDROCHLORIDE [Suspect]
     Active Substance: METFORMIN HYDROCHLORIDE
     Indication: Product used for unknown indication
     Dosage: 20 MILLIGRAM, ONCE A DAY
     Route: 048
  5. METFORMIN HYDROCHLORIDE [Suspect]
     Active Substance: METFORMIN HYDROCHLORIDE
     Dosage: 850 MILLIGRAM, TWO TIMES A DAY
     Route: 048
  6. RAMIPRIL [Suspect]
     Active Substance: RAMIPRIL
     Indication: Product used for unknown indication
     Dosage: UNK, 5 MG, 1-0-0-0, TABLETTEN
     Route: 048
  7. RAMIPRIL [Suspect]
     Active Substance: RAMIPRIL
     Dosage: 5 MILLIGRAM, ONCE A DAY
     Route: 048
  8. SITAGLIPTIN [Suspect]
     Active Substance: SITAGLIPTIN
     Indication: Product used for unknown indication
     Dosage: 50 MILLIGRAM, TWO TIMES A DAY
     Route: 048
  9. METOPROLOL [Suspect]
     Active Substance: METOPROLOL
     Indication: Product used for unknown indication
     Dosage: 47.5 MILLIGRAM, TWO TIMES A DAY
     Route: 048
  10. ASPIRIN [Concomitant]
     Active Substance: ASPIRIN
     Indication: Product used for unknown indication
     Dosage: 100 MILLIGRAM,(100 MG, 1-0-0-0, TABLETTEN)
     Route: 048
  11. ASPIRIN [Concomitant]
     Active Substance: ASPIRIN
     Dosage: 100 MILLIGRAM
     Route: 048
  12. ASPIRIN [Concomitant]
     Active Substance: ASPIRIN
     Dosage: 100 MILLIGRAM
     Route: 048
  13. POTASSIUM CITRATE [Concomitant]
     Active Substance: POTASSIUM CITRATE
     Indication: Product used for unknown indication
     Dosage: 2157.3 MILLIGRAM, ONCE A DAY
     Route: 048
  14. LEVOTHYROXINE [Concomitant]
     Active Substance: LEVOTHYROXINE
     Indication: Product used for unknown indication
     Dosage: 25 MICROGRAM, ONCE A DAY
     Route: 048
  15. LEVOTHYROXINE [Concomitant]
     Active Substance: LEVOTHYROXINE
     Dosage: 2.5 MICROGRAM, ONCE A DAY
     Route: 048
  16. MEMANTINE [Concomitant]
     Active Substance: MEMANTINE
     Indication: Product used for unknown indication
     Dosage: 20 MILLIGRAM,1-0-0-0, TABLETTEN
     Route: 048
  17. MEMANTINE [Concomitant]
     Active Substance: MEMANTINE
     Dosage: 20 MILLIGRAM
     Route: 065
  18. MEMANTINE [Concomitant]
     Active Substance: MEMANTINE
     Dosage: 20 MILLIGRAM
     Route: 065
  19. NIFEDIPINE [Concomitant]
     Active Substance: NIFEDIPINE
     Indication: Product used for unknown indication
     Dosage: 20 MILLIGRAM, TWO TIMES A DAY
     Route: 048
  20. NIFEDIPINE [Concomitant]
     Active Substance: NIFEDIPINE
     Dosage: 20 MILLIGRAM, TWO TIMES A DAY
     Route: 048
  21. NIFEDIPINE [Concomitant]
     Active Substance: NIFEDIPINE
     Dosage: 20 MILLIGRAM, TWO TIMES A DAY
     Route: 065
  22. PANTOPRAZOLE SODIUM [Concomitant]
     Active Substance: PANTOPRAZOLE SODIUM
     Indication: Product used for unknown indication
     Dosage: 20 MILLIGRAM, ONCE A DAY
     Route: 048
  23. PANTOPRAZOLE SODIUM [Concomitant]
     Active Substance: PANTOPRAZOLE SODIUM
     Dosage: 20 MILLIGRAM, ONCE A DAY(20 MG, 1-0-0-0, PROLONGED-RELEASE TABLETS)
     Route: 065
  24. SIMVASTATIN [Concomitant]
     Active Substance: SIMVASTATIN
     Indication: Product used for unknown indication
     Dosage: 40 MILLIGRAM, ONCE A DAY
     Route: 048
  25. SIMVASTATIN [Concomitant]
     Active Substance: SIMVASTATIN
     Dosage: 40 MILLIGRAM, ONCE A DAY
     Route: 048
  26. SIMVASTATIN [Concomitant]
     Active Substance: SIMVASTATIN
     Dosage: 40 MILLIGRAM, ONCE A DAY
     Route: 048
  27. POTASSIUM CITRATE [Concomitant]
     Active Substance: POTASSIUM CITRATE
     Indication: Product used for unknown indication
     Dosage: 2157.3 MILLIGRAM
     Route: 048

REACTIONS (8)
  - Dysuria [Unknown]
  - Acute kidney injury [Unknown]
  - Eye swelling [Unknown]
  - Condition aggravated [Unknown]
  - Atrioventricular block [Unknown]
  - Oedema peripheral [Unknown]
  - Cardiac failure [Unknown]
  - Pain [Unknown]
